FAERS Safety Report 15115514 (Version 1)
Quarter: 2018Q3

REPORT INFORMATION
  Report Type: Spontaneous
  Country: US (occurrence: US)
  Receive Date: 20180612
  Receipt Date: 20180612
  Transmission Date: 20181010
  Serious: Yes (Other)
  Sender: FDA-Public Use
  Company Number: None

PATIENT
  Age: 69 Year
  Sex: Female
  Weight: 63.96 kg

DRUGS (3)
  1. LANTUS [Suspect]
     Active Substance: INSULIN GLARGINE
     Indication: TYPE 1 DIABETES MELLITUS
     Dosage: AM SHOT 3A, 12 LA, PMSHOT 3A, 6 LA, 2X + 3X QD INJECTION
     Dates: start: 20050630
  2. MULTIPLE VITAMINS/MINERALS [Concomitant]
  3. APIDRA [Concomitant]
     Active Substance: INSULIN GLULISINE

REACTIONS (4)
  - Drug ineffective [None]
  - Inability to afford medication [None]
  - Blood glucose increased [None]
  - Product quality issue [None]

NARRATIVE: CASE EVENT DATE: 20050630
